FAERS Safety Report 13738499 (Version 1)
Quarter: 2017Q3

REPORT INFORMATION
  Report Type: Spontaneous
  Country: US (occurrence: US)
  Receive Date: 20170710
  Receipt Date: 20170710
  Transmission Date: 20171127
  Serious: No
  Sender: FDA-Public Use
  Company Number: US-SAOL THERAPEUTICS-2016SAO01310

PATIENT
  Sex: Female

DRUGS (1)
  1. LIORESAL [Suspect]
     Active Substance: BACLOFEN
     Indication: MUSCLE SPASTICITY

REACTIONS (6)
  - Sensory disturbance [Unknown]
  - Heart rate increased [Unknown]
  - Arrhythmia [Unknown]
  - Dizziness [Unknown]
  - Device kink [Unknown]
  - Device infusion issue [Unknown]

NARRATIVE: CASE EVENT DATE: 2016
